FAERS Safety Report 9771188 (Version 2)
Quarter: 2014Q2

REPORT INFORMATION
  Report Type: Spontaneous
  Country: US (occurrence: US)
  Receive Date: 20131218
  Receipt Date: 20140605
  Transmission Date: 20141212
  Serious: Yes (Hospitalization)
  Sender: FDA-Public Use
  Company Number: US-B.I. PHARMACEUTICALS,INC./RIDGEFIELD-2013-BI-41778BP

PATIENT
  Sex: Male
  Weight: 117.93 kg

DRUGS (14)
  1. PRADAXA [Suspect]
     Indication: ANTICOAGULANT THERAPY
     Dosage: 300 MG
     Route: 048
     Dates: start: 20101119, end: 20110405
  2. PRADAXA [Suspect]
     Indication: ATRIAL FIBRILLATION
  3. FOSAMAX [Concomitant]
     Dosage: 10 MG
     Route: 065
     Dates: start: 2004, end: 2012
  4. LIPITOR [Concomitant]
     Dosage: 40 MG
     Route: 065
     Dates: start: 2004
  5. DIGOXIN [Concomitant]
     Dosage: 0.125 NR
     Route: 065
  6. DETROL [Concomitant]
     Dosage: 5.7143 MG
     Route: 065
  7. PROSCAR [Concomitant]
     Dosage: 5 NR
     Route: 065
     Dates: start: 2009
  8. FUROSEMIDE [Concomitant]
     Dosage: 80 MG
     Route: 065
     Dates: start: 2004
  9. METOPROLOL XL [Concomitant]
     Dosage: 100 MG
     Route: 065
     Dates: start: 1995
  10. MULTIVITAMIN [Concomitant]
     Dosage: 1 ANZ
     Route: 065
  11. K-DUR [Concomitant]
     Dosage: 40 MEQ
     Route: 065
  12. FLOMAX [Concomitant]
     Route: 065
     Dates: start: 1996
  13. TRIAMCINOLONE [Concomitant]
     Route: 061
  14. SANCTURA [Concomitant]
     Dosage: 1 ANZ
     Route: 065
     Dates: start: 2009, end: 2013

REACTIONS (4)
  - Gastrointestinal haemorrhage [Recovered/Resolved]
  - Anaemia [Unknown]
  - Coagulopathy [Unknown]
  - Renal failure acute [Recovered/Resolved]
